FAERS Safety Report 8963311 (Version 2)
Quarter: 2012Q4

REPORT INFORMATION
  Report Type: 
  Country: US (occurrence: US)
  Receive Date: 20121214
  Receipt Date: 20121228
  Transmission Date: 20130627
  Serious: Yes (Other)
  Sender: FDA-Public Use
  Company Number: US-SANOFI-AVENTIS-2012SA089513

PATIENT
  Age: 79 Year
  Sex: Female

DRUGS (1)
  1. AMBIEN [Suspect]
     Route: 048
     Dates: start: 1988

REACTIONS (10)
  - Cerebral haemorrhage [Unknown]
  - Myocardial infarction [Unknown]
  - Balance disorder [Unknown]
  - Back pain [Unknown]
  - Unevaluable event [Unknown]
  - Fibromyalgia [Unknown]
  - Arthralgia [Unknown]
  - Incorrect drug administration duration [Unknown]
  - Therapeutic response unexpected [Unknown]
  - Wrong technique in drug usage process [Unknown]
